FAERS Safety Report 8848118 (Version 1)
Quarter: 2012Q4

REPORT INFORMATION
  Report Type: 
  Country: US (occurrence: US)
  Receive Date: 20121018
  Receipt Date: 20121018
  Transmission Date: 20130627
  Serious: Yes (Death, Hospitalization)
  Sender: FDA-Public Use
  Company Number: US-ROCHE-1132317

PATIENT
  Age: 57 Year
  Sex: Male

DRUGS (3)
  1. XELODA [Suspect]
     Indication: PANCREATIC CARCINOMA
     Dosage: monday and friday
     Route: 048
     Dates: start: 20110504
  2. XELODA [Suspect]
     Indication: GASTRINOMA
  3. GEMZAR [Concomitant]

REACTIONS (2)
  - Gastrinoma [Fatal]
  - Vomiting [Unknown]
